FAERS Safety Report 9863538 (Version 3)
Quarter: 2014Q2

REPORT INFORMATION
  Report Type: Spontaneous
  Country: US (occurrence: US)
  Receive Date: 20140203
  Receipt Date: 20140502
  Transmission Date: 20141212
  Serious: Yes (Other)
  Sender: FDA-Public Use
  Company Number: US-PFIZER INC-2014028547

PATIENT
  Age: 61 Year
  Sex: Male
  Weight: 73 kg

DRUGS (28)
  1. LIPITOR [Suspect]
     Indication: HYPERLIPIDAEMIA
     Dosage: 10 MG, DAILY IN PM
     Dates: end: 20140118
  2. ATORVASTATIN CALCIUM [Suspect]
     Dosage: 10 MG, 1X/DAY
  3. LITHIUM [Concomitant]
     Dosage: UNK
  4. BOTOX [Concomitant]
     Indication: SPASMODIC DYSPHONIA
     Dosage: UNK (BOTOX 2-4 CC INJECTIONS Q 5-7 MONTHS PRN)
  5. LAMICTAL [Concomitant]
     Dosage: 100 MG, DAILY
     Route: 048
  6. VITAMIN B COMPLEX [Concomitant]
     Dosage: DAILY
     Route: 060
  7. MELATONIN [Concomitant]
     Dosage: AT NIGHT
  8. ATIVAN [Concomitant]
     Dosage: 1 MG, AT BEDTIME
     Route: 048
  9. ASTEPRO [Concomitant]
     Dosage: 2 DF, 1X/DAY, 2 SPRAYS NIGHTLY
     Route: 045
  10. SEROQUEL [Concomitant]
     Dosage: 25 MG, 1-2 TABS AT BEDTIME
     Route: 048
  11. VITAMIN D3 [Concomitant]
     Dosage: 1000 IU, 2X/DAY
     Route: 048
  12. RANITIDINE HYDROCHLORIDE [Concomitant]
     Dosage: 300 MG AT NIGHT
     Route: 048
  13. SINGULAIR [Concomitant]
     Dosage: 10 MG, 1X/DAY
     Route: 048
  14. OMEPRAZOLE [Concomitant]
     Dosage: 40 MG, 1X/DAY
     Route: 048
  15. ASPIRIN [Concomitant]
     Dosage: 81 MG, 2X/DAY
     Route: 048
  16. FUROSEMIDE [Concomitant]
     Dosage: 40 MG, 1X/DAY
     Route: 048
     Dates: start: 20140107
  17. FLONASE [Concomitant]
     Dosage: 50 UG, 1X/DAY, 2 SPRAYS AT BEDTIME
     Route: 045
     Dates: start: 20140107
  18. LAMOTRIGINE [Concomitant]
     Dosage: 100 MG, 1X/DAY
     Route: 048
     Dates: start: 20140107
  19. CARDURA [Concomitant]
     Dosage: 1 MG, DAILY
     Route: 048
     Dates: start: 20140107
  20. LISINOPRIL [Concomitant]
     Dosage: 40 MG, 1X/DAY
     Route: 048
     Dates: start: 20140107
  21. PROPRANOLOL HYDROCHLORIDE [Concomitant]
     Dosage: 20 MG, 2X/DAY
     Route: 048
     Dates: start: 20140107
  22. NORVASC [Concomitant]
     Dosage: 5 MG, 2X/DAY
     Route: 048
     Dates: start: 20140107
  23. SYMBICORT [Concomitant]
     Dosage: 160/4.5 MCG, 2 PUFFS TWICE DAILY
     Dates: start: 20140107
  24. QUETIAPINE FUMARATE [Concomitant]
     Dosage: 1-2 TABLETS AT BEDTIME
     Route: 048
     Dates: start: 20131001
  25. CYCLOBENZAPRINE HCL [Concomitant]
     Dosage: 10 MG, 1X/DAY AT BEDTIME
     Route: 048
     Dates: start: 20110701
  26. TRIAZOLAM [Concomitant]
     Dosage: 0.25 MG, 1 TABLET AT BEDTIME AS NEEDED
     Route: 048
     Dates: start: 20130729
  27. ALBUTEROL [Concomitant]
     Dosage: 2 DF, 4X/DAY AS NEEDED
     Dates: start: 20130218
  28. PANCREATIC ENZYMES [Suspect]
     Dosage: 3 DF WITH EACH MEAL

REACTIONS (6)
  - Muscle atrophy [Not Recovered/Not Resolved]
  - Gastrointestinal disorder [Unknown]
  - Muscular weakness [Unknown]
  - Gastritis [Unknown]
  - Nausea [Recovering/Resolving]
  - Irritable bowel syndrome [Not Recovered/Not Resolved]
